FAERS Safety Report 8927068 (Version 1)
Quarter: 2012Q4

REPORT INFORMATION
  Report Type: 
  Country: FR (occurrence: FR)
  Receive Date: 20121127
  Receipt Date: 20121127
  Transmission Date: 20130627
  Serious: Yes (Other)
  Sender: FDA-Public Use
  Company Number: FR-PFIZER INC-2012290404

PATIENT
  Age: 27 Year
  Sex: Female

DRUGS (2)
  1. TRINORDIOL [Suspect]
     Indication: ORAL CONTRACEPTION
     Dosage: 1 DF, 1x/day
     Route: 048
  2. GILENYA [Interacting]
     Indication: MULTIPLE SCLEROSIS
     Dosage: 0.5 mg, 1x/day
     Route: 048
     Dates: start: 20120725

REACTIONS (5)
  - Drug interaction [Recovered/Resolved]
  - Drug ineffective [Recovered/Resolved]
  - Unintended pregnancy [Recovered/Resolved]
  - Pregnancy on contraceptive [None]
  - Abortion induced [None]
